FAERS Safety Report 13739202 (Version 1)
Quarter: 2017Q3

REPORT INFORMATION
  Report Type: Report from Study
  Country: US (occurrence: US)
  Receive Date: 20170710
  Receipt Date: 20170710
  Transmission Date: 20171127
  Serious: No
  Sender: FDA-Public Use
  Company Number: US-SAOL THERAPEUTICS-2017SAO00091

PATIENT
  Age: 78 Year
  Sex: Female

DRUGS (6)
  1. DILAUDID [Suspect]
     Active Substance: HYDROMORPHONE HYDROCHLORIDE
     Dosage: 0.549 MG, \DAY
     Route: 037
     Dates: start: 20161102
  2. BUPIVACAINE. [Suspect]
     Active Substance: BUPIVACAINE
     Dosage: 2.291 MG, \DAY
     Route: 037
     Dates: start: 20161102
  3. BACLOFEN. [Suspect]
     Active Substance: BACLOFEN
     Dosage: 41.24 ?G, \DAY
     Route: 037
     Dates: start: 20161102
  4. BACLOFEN. [Suspect]
     Active Substance: BACLOFEN
     Dosage: 168.18 ?G, \DAY
     Route: 037
     Dates: start: 20161102
  5. DILAUDID [Suspect]
     Active Substance: HYDROMORPHONE HYDROCHLORIDE
     Dosage: 2.242 MG, \DAY
     Route: 037
     Dates: start: 20161102
  6. BUPIVACAINE. [Suspect]
     Active Substance: BUPIVACAINE
     Dosage: 9.343 UNK, \DAY
     Route: 037
     Dates: start: 20161102

REACTIONS (1)
  - Pain [Recovered/Resolved]

NARRATIVE: CASE EVENT DATE: 20161215
